FAERS Safety Report 8275877-2 (Version None)
Quarter: 2012Q2

REPORT INFORMATION
  Report Type: 
  Country: None (occurrence: None)
  Receive Date: 20120412
  Receipt Date: 20120402
  Transmission Date: 20120825
  Serious: Yes (Other)
  Sender: FDA-Public Use
  Company Number: US-SANOFI-AVENTIS-2012SA008488

PATIENT
  Age: 72 Year
  Sex: Female

DRUGS (5)
  1. GLIPIZIDE [Concomitant]
     Dates: start: 19990101
  2. AMLODIPINE [Concomitant]
     Indication: BLOOD PRESSURE
     Dates: start: 19990101
  3. SOLOSTAR [Suspect]
  4. LANTUS [Suspect]
     Dosage: DOSE:20 UNIT(S)
     Route: 058
  5. METFORMIN HCL [Concomitant]
     Dosage: 500 UNITS TO 1000 UNITS DOSE:500 UNIT(S)

REACTIONS (8)
  - NEOPLASM [None]
  - STRESS [None]
  - HYPOKALAEMIA [None]
  - GLYCOSYLATED HAEMOGLOBIN INCREASED [None]
  - VITAMIN D DECREASED [None]
  - RASH [None]
  - CARPAL TUNNEL SYNDROME [None]
  - BLOOD GLUCOSE INCREASED [None]
